FAERS Safety Report 4907132-X (Version None)
Quarter: 2006Q1

REPORT INFORMATION
  Report Type: 
  Country: None (occurrence: None)
  Receive Date: 20060206
  Receipt Date: 20060124
  Transmission Date: 20060701
  Serious: Yes (Death, Hospitalization)
  Sender: FDA-Public Use
  Company Number: 2006EN000050

PATIENT
  Age: 5 Month
  Sex: Male

DRUGS (9)
  1. ADAGEN [Suspect]
     Indication: COMBINED IMMUNODEFICIENCY
     Dosage: SEE IMAGE, IM
     Route: 030
     Dates: start: 20050831
  2. BACTRIM [Concomitant]
  3. CIPROFLOX ^APM^ [Concomitant]
  4. CLARITHROMYCIN [Concomitant]
  5. FLUCONAZOLE [Concomitant]
  6. RIFAMPICIN [Concomitant]
  7. GANCICLOVIR [Concomitant]
  8. AMIKACIN [Concomitant]
  9. TEICOPLANIN [Concomitant]

REACTIONS (4)
  - LABORATORY TEST ABNORMAL [None]
  - LUNG INFECTION PSEUDOMONAL [None]
  - PNEUMONITIS [None]
  - RESPIRATORY FAILURE [None]
